FAERS Safety Report 17923020 (Version 1)
Quarter: 2020Q2

REPORT INFORMATION
  Report Type: Spontaneous
  Country: US (occurrence: US)
  Receive Date: 20200621
  Receipt Date: 20200621
  Transmission Date: 20200714
  Serious: Yes (Life-Threatening, Hospitalization)
  Sender: FDA-Public Use
  Company Number: None

PATIENT
  Age: 48 Year
  Sex: Female
  Weight: 66.15 kg

DRUGS (7)
  1. NUVARING [Suspect]
     Active Substance: ETHINYL ESTRADIOL\ETONOGESTREL
     Indication: CONTRACEPTION
     Dosage: ?          QUANTITY:1 VAGINAL INSERTION;OTHER FREQUENCY:EVERY 4 WEEKS;?
     Route: 067
  2. SERTRALINE [Concomitant]
     Active Substance: SERTRALINE HYDROCHLORIDE
  3. BUSPAR [Concomitant]
     Active Substance: BUSPIRONE HYDROCHLORIDE
  4. XANAX [Concomitant]
     Active Substance: ALPRAZOLAM
  5. MULTIVITAMIN [Concomitant]
     Active Substance: VITAMINS
  6. XARELTO [Concomitant]
     Active Substance: RIVAROXABAN
  7. MELATONIN [Concomitant]
     Active Substance: MELATONIN

REACTIONS (2)
  - Pulmonary embolism [None]
  - Myocardial infarction [None]

NARRATIVE: CASE EVENT DATE: 20200531
